FAERS Safety Report 9856861 (Version 1)
Quarter: 2014Q1

REPORT INFORMATION
  Report Type: Spontaneous
  Country: GB (occurrence: GB)
  Receive Date: 20140130
  Receipt Date: 20140130
  Transmission Date: 20141002
  Serious: Yes (Other)
  Sender: FDA-Public Use
  Company Number: GB-ABBVIE-14P-167-1195949-00

PATIENT
  Sex: Male

DRUGS (3)
  1. PROSTAP [Suspect]
     Indication: PROSTATE CANCER
     Dates: start: 20131023
  2. ZOLADEX [Suspect]
     Indication: PROSTATE CANCER
     Route: 058
  3. CASODEX [Suspect]
     Indication: PROSTATE CANCER
     Route: 048

REACTIONS (2)
  - Malignant neoplasm progression [Unknown]
  - Hot flush [Unknown]
